FAERS Safety Report 7767818-9 (Version None)
Quarter: 2011Q3

REPORT INFORMATION
  Report Type: 
  Country: None (occurrence: None)
  Receive Date: 20110922
  Receipt Date: 20110216
  Transmission Date: 20111222
  Serious: Yes (Hospitalization)
  Sender: FDA-Public Use
  Company Number: US-ASTRAZENECA-2011SE09125

PATIENT
  Age: 48 Year
  Sex: Female
  Weight: 45.8 kg

DRUGS (3)
  1. LITHIUM CARBONATE [Concomitant]
  2. CLONAZEPAM [Concomitant]
  3. SEROQUEL [Suspect]
     Indication: BIPOLAR DISORDER
     Route: 048
     Dates: start: 20100601, end: 20110101

REACTIONS (4)
  - AMNESIA [None]
  - MANIA [None]
  - DRUG DOSE OMISSION [None]
  - INSOMNIA [None]
